FAERS Safety Report 13384663 (Version 4)
Quarter: 2017Q2

REPORT INFORMATION
  Report Type: Report from Study
  Country: CO (occurrence: CO)
  Receive Date: 20170329
  Receipt Date: 20170612
  Transmission Date: 20170830
  Serious: Yes (Death, Hospitalization, Other)
  Sender: FDA-Public Use
  Company Number: CO-INCYTE CORPORATION-2017IN002209

PATIENT

DRUGS (1)
  1. JAKAVI [Suspect]
     Active Substance: RUXOLITINIB
     Indication: POLYCYTHAEMIA VERA
     Dosage: 5 MG, BID
     Route: 048
     Dates: start: 20160930

REACTIONS (7)
  - Drug intolerance [Unknown]
  - Pneumonia [Unknown]
  - Fall [Unknown]
  - Metastatic malignant melanoma [Unknown]
  - Femur fracture [Unknown]
  - Lung cancer metastatic [Fatal]
  - Concomitant disease progression [Unknown]

NARRATIVE: CASE EVENT DATE: 20170127
